FAERS Safety Report 13356252 (Version 2)
Quarter: 2017Q3

REPORT INFORMATION
  Report Type: Report from Study
  Country: CA (occurrence: CA)
  Receive Date: 20170321
  Receipt Date: 20170911
  Transmission Date: 20171127
  Serious: Yes (Other)
  Sender: FDA-Public Use
  Company Number: CA-INCYTE CORPORATION-2016IN001756

PATIENT

DRUGS (4)
  1. JAKAVI [Suspect]
     Active Substance: RUXOLITINIB
     Dosage: 15 MG, BID
     Route: 048
  2. TYLENOL [Suspect]
     Active Substance: ACETAMINOPHEN
     Dosage: 4 DF, QD
     Route: 065
  3. TYLENOL [Suspect]
     Active Substance: ACETAMINOPHEN
     Indication: PRODUCT USED FOR UNKNOWN INDICATION
     Dosage: 3 DF, QD
     Route: 065
  4. JAKAVI [Suspect]
     Active Substance: RUXOLITINIB
     Indication: POLYCYTHAEMIA VERA
     Dosage: 10 MG, BID
     Route: 048
     Dates: start: 20160209

REACTIONS (12)
  - Psoriatic arthropathy [Unknown]
  - Gastric disorder [Unknown]
  - Haemorrhage [Unknown]
  - Splenomegaly [Unknown]
  - Contusion [Unknown]
  - Influenza [Recovering/Resolving]
  - Increased appetite [Unknown]
  - Abdominal pain [Unknown]
  - Weight increased [Unknown]
  - Weight decreased [Unknown]
  - Red blood cell count increased [Unknown]
  - Drug hypersensitivity [Unknown]
